FAERS Safety Report 8906580 (Version 1)
Quarter: 2012Q4

REPORT INFORMATION
  Report Type: 
  Country: US (occurrence: US)
  Receive Date: 20121113
  Receipt Date: 20121113
  Transmission Date: 20130627
  Serious: No
  Sender: FDA-Public Use
  Company Number: US-AMGEN-USASP2012011076

PATIENT
  Age: 37 Year
  Sex: Male
  Weight: 70.3 kg

DRUGS (2)
  1. ENBREL [Suspect]
     Indication: ANKYLOSING SPONDYLITIS
     Dosage: 50 mg, qwk
     Dates: start: 20090427
  2. RECLAST [Concomitant]

REACTIONS (3)
  - Angina pectoris [Unknown]
  - Headache [Unknown]
  - Pain in jaw [Unknown]
